FAERS Safety Report 15302492 (Version 1)
Quarter: 2020Q3

REPORT INFORMATION
  Report Type: Report from Study
  Country: AU (occurrence: AU)
  Receive Date: 20180821
  Receipt Date: 20180821
  Transmission Date: 20201105
  Serious: Yes (Other)
  Sender: FDA-Public Use
  Company Number: AU-JNJFOC-20170414111

PATIENT
  Age: 61 Year
  Sex: Male
  Weight: 91 kg

DRUGS (4)
  1. USTEKINUMAB [Suspect]
     Active Substance: USTEKINUMAB
     Route: 058
  2. 6?MP [Concomitant]
     Active Substance: MERCAPTOPURINE
     Indication: COLITIS ULCERATIVE
     Route: 048
     Dates: start: 20160101
  3. USTEKINUMAB [Suspect]
     Active Substance: USTEKINUMAB
     Indication: COLITIS ULCERATIVE
     Route: 058
     Dates: start: 20170201
  4. MESALAZINE [Concomitant]
     Active Substance: MESALAMINE
     Indication: COLITIS ULCERATIVE
     Route: 048
     Dates: start: 20150101

REACTIONS (1)
  - Prostate cancer [Recovered/Resolved]

NARRATIVE: CASE EVENT DATE: 20170410
